FAERS Safety Report 9442951 (Version 1)
Quarter: 2013Q3

REPORT INFORMATION
  Report Type: Spontaneous
  Country: TR (occurrence: TR)
  Receive Date: 20130806
  Receipt Date: 20130806
  Transmission Date: 20140515
  Serious: Yes (Hospitalization, Other)
  Sender: FDA-Public Use
  Company Number: TR-ACTAVIS-2013-13302

PATIENT
  Age: 76 Year
  Sex: Male

DRUGS (1)
  1. SILDENAFIL (UNKNOWN) [Suspect]
     Indication: SEXUAL DYSFUNCTION
     Dosage: UNK
     Route: 065

REACTIONS (1)
  - Purpura [Recovered/Resolved]
